FAERS Safety Report 11563438 (Version 1)
Quarter: 2015Q3

REPORT INFORMATION
  Report Type: Spontaneous
  Country: US (occurrence: US)
  Receive Date: 20150928
  Receipt Date: 20150928
  Transmission Date: 20151125
  Serious: No
  Sender: FDA-Public Use
  Company Number: US-WATSON-2014-28590

PATIENT
  Age: 77 Year
  Sex: Female
  Weight: 81.63 kg

DRUGS (4)
  1. HYDROCHLOROTHIAZIDE AND LISINOPRIL [Concomitant]
     Active Substance: HYDROCHLOROTHIAZIDE\LISINOPRIL
     Indication: HYPERTENSION
     Dosage: 0.5 DF, QD
     Route: 065
  2. HYDROCHLOROTHIAZIDE AND LISINOPRIL [Concomitant]
     Active Substance: HYDROCHLOROTHIAZIDE\LISINOPRIL
     Dosage: 12 MG, UNK
  3. XANAX [Concomitant]
     Active Substance: ALPRAZOLAM
     Indication: ANXIETY
     Dosage: 1 DF, HS PRN
     Route: 065
     Dates: start: 20140701
  4. ZENPEP [Suspect]
     Active Substance: PANCRELIPASE\PANCRELIPASE AMYLASE\PANCRELIPASE LIPASE\PANCRELIPASE PROTEASE
     Indication: POST CHOLECYSTECTOMY SYNDROME
     Dosage: 20000 USP, TID WITH EACH MEAL
     Route: 065
     Dates: start: 20140827

REACTIONS (1)
  - Abdominal pain [Recovered/Resolved]

NARRATIVE: CASE EVENT DATE: 20140904
